FAERS Safety Report 4332021-1 (Version None)
Quarter: 2004Q2

REPORT INFORMATION
  Report Type: 
  Country: None (occurrence: None)
  Receive Date: 20040405
  Receipt Date: 20040329
  Transmission Date: 20050107
  Serious: Yes (Death, Other)
  Sender: FDA-Public Use
  Company Number: PHFR2004GB01564

PATIENT
  Age: 53 Year
  Sex: Male

DRUGS (6)
  1. MABCAMPATH [Suspect]
     Indication: BONE MARROW TRANSPLANT
     Dosage: 20MG/DAY DAYS -8 TO -4
  2. FLUDARABINE PHOSPHATE [Suspect]
     Indication: BONE MARROW TRANSPLANT
     Dosage: 30MG/M2 DAYS -7 TO -3
  3. MELPHALAN [Suspect]
     Indication: BONE MARROW TRANSPLANT
     Dosage: 140MG/M2 DAY-2
  4. CYCLOSPORINE [Suspect]
     Indication: BONE MARROW TRANSPLANT
  5. IMMUNE GLOBULIN INTRAVENOUS (HUMAN) [Suspect]
     Indication: BONE MARROW TRANSPLANT
  6. CORTICOSTEROID NOS [Suspect]

REACTIONS (10)
  - ADENOVIRAL HEPATITIS [None]
  - ADENOVIRUS INFECTION [None]
  - DIARRHOEA [None]
  - GASTROENTERITIS [None]
  - GASTROENTERITIS ADENOVIRUS [None]
  - GRAFT VERSUS HOST DISEASE [None]
  - HEPATITIS VIRAL [None]
  - MULTI-ORGAN FAILURE [None]
  - PNEUMONIA ADENOVIRAL [None]
  - PNEUMONIA VIRAL [None]
